FAERS Safety Report 9259441 (Version 1)
Quarter: 2013Q2

REPORT INFORMATION
  Report Type: Spontaneous
  Country: US (occurrence: US)
  Receive Date: 20130428
  Receipt Date: 20130428
  Transmission Date: 20140414
  Serious: Yes (Other)
  Sender: FDA-Public Use
  Company Number: US-TEVA-400520USA

PATIENT
  Age: 63 Year
  Sex: Female

DRUGS (5)
  1. CARBOPLATIN [Suspect]
     Indication: OVARIAN CANCER RECURRENT
  2. OXALIPLATIN [Suspect]
     Indication: OVARIAN CANCER RECURRENT
  3. CISPLATIN [Suspect]
     Indication: OVARIAN CANCER RECURRENT
     Route: 033
  4. DOXORUBICIN LIPOSOMAL [Suspect]
     Indication: OVARIAN CANCER RECURRENT
  5. PACLITAXEL [Concomitant]
     Indication: OVARIAN CANCER RECURRENT

REACTIONS (2)
  - Renal failure chronic [Unknown]
  - Malignant neoplasm progression [Unknown]
